FAERS Safety Report 12834842 (Version 1)
Quarter: 2016Q4

REPORT INFORMATION
  Report Type: Spontaneous
  Country: FR (occurrence: LU)
  Receive Date: 20161010
  Receipt Date: 20161010
  Transmission Date: 20170207
  Serious: Yes (Hospitalization)
  Sender: FDA-Public Use
  Company Number: FR-PFIZER INC-2016461738

PATIENT
  Age: 53 Year
  Sex: Male

DRUGS (6)
  1. LUCRIN [Concomitant]
     Active Substance: LEUPROLIDE ACETATE
     Dosage: UNK
     Dates: start: 2014, end: 2015
  2. MEDROL [Suspect]
     Active Substance: METHYLPREDNISOLONE
     Indication: PROSTATE CANCER METASTATIC
     Dosage: UNK MG, UNK
     Route: 048
     Dates: start: 201304, end: 201404
  3. MEDROL [Suspect]
     Active Substance: METHYLPREDNISOLONE
     Dosage: 8 MG, 1X/DAY
     Route: 048
     Dates: start: 201512, end: 20160816
  4. ZYTIGA [Suspect]
     Active Substance: ABIRATERONE ACETATE
     Dosage: 250 MG, UNK
     Route: 048
     Dates: start: 201512, end: 20160816
  5. ZYTIGA [Suspect]
     Active Substance: ABIRATERONE ACETATE
     Indication: PROSTATE CANCER METASTATIC
     Dosage: UNK
     Dates: start: 201304, end: 201404
  6. DEPO ELIGARD [Concomitant]
     Dosage: UNK
     Dates: start: 2015

REACTIONS (6)
  - Abnormal behaviour [Recovered/Resolved]
  - Depression [Recovered/Resolved]
  - Mania [Recovered/Resolved]
  - Affect lability [Recovered/Resolved]
  - Persecutory delusion [Recovered/Resolved]
  - Back pain [Recovered/Resolved]

NARRATIVE: CASE EVENT DATE: 201309
